FAERS Safety Report 9722934 (Version 3)
Quarter: 2014Q3

REPORT INFORMATION
  Report Type: Spontaneous
  Country: US (occurrence: None)
  Receive Date: 20131126
  Receipt Date: 20140813
  Transmission Date: 20150326
  Serious: Yes (Hospitalization)
  Sender: FDA-Public Use
  Company Number: 2013US002316

PATIENT
  Age: 41 Year
  Sex: Male
  Weight: 77 kg

DRUGS (18)
  1. NEXIUM I.V. [Concomitant]
     Active Substance: ESOMEPRAZOLE SODIUM
  2. DEPOCYTE (CYTARABINE) LIPOSOME INJECTABLE SUSPENSION, MG [Concomitant]
     Active Substance: CYTARABINE
  3. DAPSONE (DAPSONE) [Concomitant]
  4. VALTREX [Concomitant]
     Active Substance: VALACYCLOVIR HYDROCHLORIDE
  5. ORAMORPH (MORPHINE SULFATE PENTAHYDRATE) [Concomitant]
  6. METOPROLOL (METOPROLOL) [Concomitant]
     Active Substance: METOPROLOL
  7. ALLOPURINOL. [Concomitant]
     Active Substance: ALLOPURINOL
  8. ATIVAN [Concomitant]
     Active Substance: LORAZEPAM
  9. MAGNESIUM (MAGNESIUM) [Concomitant]
     Active Substance: MAGNESIUM
  10. PROVENTIL (SALBUTAMOL) [Concomitant]
  11. ACYCLOVIR (ACYCLOVIR) [Concomitant]
     Active Substance: ACYCLOVIR
  12. COMPAZINE (PROCHORPERAZINE MALEATE) [Concomitant]
  13. MIRALAX (ONDANSETRON) [Concomitant]
  14. ZOFRAN (ONDANSETRON) [Concomitant]
  15. ICLUSIG [Suspect]
     Active Substance: PONATINIB
     Indication: CHRONIC MYELOID LEUKAEMIA
     Route: 048
     Dates: start: 20130606, end: 20130831
  16. CARVEDILOL (CARVEDILOL) [Concomitant]
     Active Substance: CARVEDILOL
  17. PERI-COLACE (DOCUSATE  SODIUM) [Concomitant]
  18. K-DUR (POTASSIUM CHLORIDE) [Concomitant]

REACTIONS (14)
  - Staphylococcal infection [None]
  - Febrile neutropenia [None]
  - Scrotal abscess [None]
  - Abdominal pain [None]
  - Skin ulcer [None]
  - Penile ulceration [None]
  - Malaise [None]
  - Lymphadenopathy [None]
  - Rash pustular [None]
  - Staphylococcal skin infection [None]
  - Testicular pain [None]
  - Headache [None]
  - Cough [None]
  - Rash macular [None]

NARRATIVE: CASE EVENT DATE: 2013
